FAERS Safety Report 13932381 (Version 1)
Quarter: 2017Q3

REPORT INFORMATION
  Report Type: Spontaneous
  Country: JP (occurrence: JP)
  Receive Date: 20170904
  Receipt Date: 20170904
  Transmission Date: 20171127
  Serious: Yes (Hospitalization, Other)
  Sender: FDA-Public Use
  Company Number: JP-ACCORD-057968

PATIENT
  Age: 70 Year
  Sex: Female

DRUGS (5)
  1. GEMCITABINE/GEMCITABINE HYDROCHLORIDE [Suspect]
     Active Substance: GEMCITABINE\GEMCITABINE HYDROCHLORIDE
     Indication: PANCREATIC CARCINOMA METASTATIC
     Dosage: CUMULATIVE DOSE 4160 MG/M^2
  2. PRAVASTATIN. [Concomitant]
     Active Substance: PRAVASTATIN
  3. PACLITAXEL/PACLITAXEL LIPOSOME [Concomitant]
     Indication: PANCREATIC CARCINOMA METASTATIC
  4. DILTIAZEM. [Concomitant]
     Active Substance: DILTIAZEM
  5. ACETYLSALICYLIC ACID [Concomitant]
     Active Substance: ASPIRIN

REACTIONS (2)
  - Dry gangrene [Not Recovered/Not Resolved]
  - Ischaemia [Not Recovered/Not Resolved]
